FAERS Safety Report 5151639-X (Version None)
Quarter: 2006Q4

REPORT INFORMATION
  Report Type: 
  Country: None (occurrence: None)
  Receive Date: 20061109
  Receipt Date: 20061024
  Transmission Date: 20070319
  Serious: Yes (Hospitalization)
  Sender: FDA-Public Use
  Company Number: 2006S1007965

PATIENT
  Age: 35 Year
  Sex: Male

DRUGS (22)
  1. CLOZAPINE [Suspect]
     Indication: BIPOLAR DISORDER
     Dosage: SEE IMAGE
     Route: 048
     Dates: start: 20060817, end: 20060817
  2. CLOZAPINE [Suspect]
     Indication: BIPOLAR DISORDER
     Dosage: SEE IMAGE
     Route: 048
     Dates: start: 20060818, end: 20060820
  3. CLOZAPINE [Suspect]
     Indication: BIPOLAR DISORDER
     Dosage: PO
     Route: 048
  4. ASCORBIC ACID [Concomitant]
  5. ASPIRIN [Concomitant]
  6. CETIRIZINE HCL [Concomitant]
  7. CLONAZEPAM [Concomitant]
  8. VALPROATE SODIUM [Concomitant]
  9. EZETIMIBE [Concomitant]
  10. FENOFIBRATE [Concomitant]
  11. GLIPIZIDE [Concomitant]
  12. FERRIC HYDROXIDE POLYMALTOSE COMPLEX [Concomitant]
  13. LEVOTHYROXINE SODIUM [Concomitant]
  14. LISINOPRIL [Concomitant]
  15. MULTIVIT [Concomitant]
  16. PANTOPRAZOLE SODIUM [Concomitant]
  17. ROSIGLITAZONE [Concomitant]
  18. SIMVASTATIN [Concomitant]
  19. TEMAZEPAM [Concomitant]
  20. TRIFLUOPERAZINE HCL [Concomitant]
  21. INSULIN HM MIXTARD [Concomitant]
  22. PROPOXYPHENE NAPSYLATE AND ACETAMINOPHEN TABLETS, USP [Concomitant]

REACTIONS (5)
  - GRANULOCYTOPENIA [None]
  - ILL-DEFINED DISORDER [None]
  - MANIA [None]
  - MENTAL DISORDER [None]
  - PSYCHOTIC DISORDER [None]
